FAERS Safety Report 10690842 (Version 1)
Quarter: 2015Q1

REPORT INFORMATION
  Report Type: Report from Study
  Country: BR (occurrence: BR)
  Receive Date: 20150105
  Receipt Date: 20150105
  Transmission Date: 20150720
  Serious: Yes (Death, Hospitalization, Other)
  Sender: FDA-Public Use
  Company Number: PHHY2014BR170840

PATIENT
  Sex: Female
  Weight: 70 kg

DRUGS (6)
  1. TEGRETOL [Suspect]
     Active Substance: CARBAMAZEPINE
     Indication: SEIZURE
     Dosage: UNK OT, Q8H
     Route: 048
  2. CLEXANE [Suspect]
     Active Substance: ENOXAPARIN SODIUM
     Indication: COAGULOPATHY
     Dosage: UNK OT, QD
     Route: 065
  3. CLEXANE [Suspect]
     Active Substance: ENOXAPARIN SODIUM
     Dosage: UNK OT, BID
     Route: 030
  4. HALDOL [Suspect]
     Active Substance: HALOPERIDOL
     Indication: ANXIETY
     Dosage: 3 DF (3 TABLETS), QD
     Route: 048
  5. CLONAZEPAM. [Suspect]
     Active Substance: CLONAZEPAM
     Indication: ANXIETY
     Dosage: 1 DF (1 TABLET), PRN (DAILY, WHEN SHE EXPERIENCED INSOMNIA)
     Route: 048
  6. NEOZINE [Suspect]
     Active Substance: LEVOMEPROMAZINE
     Indication: SEIZURE
     Dosage: 1 DF (1 TABLET), QD
     Route: 065

REACTIONS (7)
  - Respiratory arrest [Fatal]
  - Retching [Unknown]
  - Insomnia [Unknown]
  - Mental retardation [Unknown]
  - Seizure [Unknown]
  - Tracheal injury [Unknown]
  - Aspiration [Fatal]
